FAERS Safety Report 5636472-4 (Version None)
Quarter: 2008Q1

REPORT INFORMATION
  Report Type: 
  Country: None (occurrence: None)
  Receive Date: 20080220
  Receipt Date: 20080205
  Transmission Date: 20080703
  Serious: No
  Sender: FDA-Public Use
  Company Number: 8029840

PATIENT
  Age: 12 Year
  Sex: Male
  Weight: 35.6 kg

DRUGS (2)
  1. METHYLPHENIDATE HCL [Suspect]
     Indication: ATTENTION DEFICIT/HYPERACTIVITY DISORDER
     Dosage: 20 MG1/D
     Dates: start: 20070125
  2. MEDIKINET [Concomitant]

REACTIONS (4)
  - MUSCLE TWITCHING [None]
  - NERVOUSNESS [None]
  - ONYCHOPHAGIA [None]
  - TIC [None]
